FAERS Safety Report 20085594 (Version 2)
Quarter: 2022Q1

REPORT INFORMATION
  Report Type: Other
  Country: EG (occurrence: None)
  Receive Date: 20211118
  Receipt Date: 20220113
  Transmission Date: 20220424
  Serious: Yes (Other)
  Sender: FDA-Public Use
  Company Number: EG-ROCHE-2953388

PATIENT

DRUGS (6)
  1. RIBAVIRIN [Suspect]
     Active Substance: RIBAVIRIN
     Indication: Chronic hepatitis C
     Route: 065
  2. RIBAVIRIN [Suspect]
     Active Substance: RIBAVIRIN
     Indication: Hepatocellular carcinoma
  3. SOFOSBUVIR [Suspect]
     Active Substance: SOFOSBUVIR
     Indication: Chronic hepatitis C
     Route: 065
  4. SOFOSBUVIR [Suspect]
     Active Substance: SOFOSBUVIR
     Indication: Hepatocellular carcinoma
  5. DACLATASVIR [Suspect]
     Active Substance: DACLATASVIR
     Indication: Chronic hepatitis C
     Route: 065
  6. DACLATASVIR [Suspect]
     Active Substance: DACLATASVIR
     Indication: Hepatocellular carcinoma

REACTIONS (4)
  - Hepatic failure [Unknown]
  - Cardiomyopathy [Unknown]
  - Upper gastrointestinal haemorrhage [Unknown]
  - Hepatocellular carcinoma [Unknown]
